FAERS Safety Report 10874814 (Version 1)
Quarter: 2015Q1

REPORT INFORMATION
  Report Type: Spontaneous
  Country: US (occurrence: US)
  Receive Date: 20150227
  Receipt Date: 20150227
  Transmission Date: 20150721
  Serious: Yes (Death)
  Sender: FDA-Public Use
  Company Number: US-BANPHARM-20153515

PATIENT
  Age: 55 Year
  Sex: Male

DRUGS (4)
  1. SMOKE [Suspect]
     Active Substance: UNSPECIFIED INGREDIENT
  2. DIPHENHYDRAMINE UNKNOWN PRODUCT [Suspect]
     Active Substance: DIPHENHYDRAMINE
  3. ETHANOL (NON-BEVERAGE) [Suspect]
     Active Substance: ALCOHOL
  4. CARBON MONOXIDE [Suspect]
     Active Substance: CARBON MONOXIDE

REACTIONS (4)
  - Death [Fatal]
  - Exposure via inhalation [None]
  - Environmental exposure [None]
  - Exposure via ingestion [None]
